FAERS Safety Report 7620894-6 (Version None)
Quarter: 2011Q3

REPORT INFORMATION
  Report Type: 
  Country: None (occurrence: None)
  Receive Date: 20110719
  Receipt Date: 20110713
  Transmission Date: 20111222
  Serious: Yes (Hospitalization, Other)
  Sender: FDA-Public Use
  Company Number: US-PFIZER INC-2010171694

PATIENT
  Sex: Female

DRUGS (8)
  1. OLANZAPINE [Concomitant]
     Indication: DEPRESSION
     Dosage: UNK
     Dates: start: 20080101
  2. RITALIN [Concomitant]
     Indication: FATIGUE
  3. TRAZODONE [Concomitant]
     Indication: DEPRESSION
  4. MESALAMINE [Concomitant]
     Indication: CROHN'S DISEASE
     Dosage: UNK
     Dates: start: 19830101
  5. TRAZODONE [Concomitant]
     Indication: INSOMNIA
     Dosage: UNK
     Dates: start: 20040101
  6. CHANTIX [Suspect]
     Indication: SMOKING CESSATION THERAPY
     Dosage: 0.5-1MG, UNK
     Route: 048
     Dates: start: 20081016, end: 20081023
  7. RITALIN [Concomitant]
     Indication: ATTENTION DEFICIT/HYPERACTIVITY DISORDER
     Dosage: UNK
     Dates: start: 20070101
  8. OLANZAPINE [Concomitant]
     Indication: PSYCHOTIC BEHAVIOUR

REACTIONS (7)
  - MENTAL DISORDER [None]
  - EMOTIONAL DISTRESS [None]
  - SUICIDAL IDEATION [None]
  - DEPRESSION [None]
  - HALLUCINATION, AUDITORY [None]
  - ANXIETY [None]
  - IMPAIRED DRIVING ABILITY [None]
